FAERS Safety Report 10580791 (Version 1)
Quarter: 2014Q4

REPORT INFORMATION
  Report Type: Spontaneous
  Country: US (occurrence: US)
  Receive Date: 20141113
  Receipt Date: 20141113
  Transmission Date: 20150529
  Serious: Yes (Hospitalization)
  Sender: FDA-Public Use
  Company Number: US-BIOGENIDEC-2014BI116232

PATIENT
  Age: 50 Year
  Sex: Male

DRUGS (1)
  1. TYSABRI [Suspect]
     Active Substance: NATALIZUMAB
     Indication: MULTIPLE SCLEROSIS
     Route: 042
     Dates: start: 20140813

REACTIONS (14)
  - Feeling abnormal [Unknown]
  - Photophobia [Not Recovered/Not Resolved]
  - Psychiatric symptom [Not Recovered/Not Resolved]
  - Influenza [Unknown]
  - Vomiting [Unknown]
  - Mood swings [Unknown]
  - Stress [Unknown]
  - Asthenia [Unknown]
  - Memory impairment [Not Recovered/Not Resolved]
  - Confusional state [Unknown]
  - Fatigue [Unknown]
  - Anxiety [Unknown]
  - Depressed mood [Unknown]
  - Coordination abnormal [Unknown]

NARRATIVE: CASE EVENT DATE: 201410
